FAERS Safety Report 8270815-0 (Version None)
Quarter: 2012Q2

REPORT INFORMATION
  Report Type: 
  Country: None (occurrence: None)
  Receive Date: 20120410
  Receipt Date: 20120403
  Transmission Date: 20120825
  Serious: Yes (Other)
  Sender: FDA-Public Use
  Company Number: US-PFIZER INC-2012084905

PATIENT
  Sex: Female

DRUGS (1)
  1. NEURONTIN [Suspect]
     Dosage: 600 MG, 4X/DAY

REACTIONS (4)
  - FALL [None]
  - INTERVERTEBRAL DISC PROTRUSION [None]
  - BACK INJURY [None]
  - HIP FRACTURE [None]
